FAERS Safety Report 14384477 (Version 1)
Quarter: 2018Q1

REPORT INFORMATION
  Report Type: Spontaneous
  Country: US (occurrence: US)
  Receive Date: 20180115
  Receipt Date: 20180115
  Transmission Date: 20180509
  Serious: Yes (Other)
  Sender: FDA-Public Use
  Company Number: US-BAYER-2018-007960

PATIENT
  Age: 23 Year
  Sex: Female

DRUGS (1)
  1. MIRENA [Suspect]
     Active Substance: LEVONORGESTREL
     Dosage: 20 MCG/24HR, CONT
     Route: 015
     Dates: start: 20120322, end: 20140618

REACTIONS (8)
  - Vomiting [None]
  - Vitreous floaters [None]
  - Visual field defect [None]
  - Weight loss poor [None]
  - Intracranial pressure increased [None]
  - Headache [None]
  - Nausea [None]
  - Papilloedema [None]
